FAERS Safety Report 7246292-5 (Version None)
Quarter: 2011Q1

REPORT INFORMATION
  Report Type: 
  Country: None (occurrence: None)
  Receive Date: 20110126
  Receipt Date: 20110120
  Transmission Date: 20110831
  Serious: Yes (Death)
  Sender: FDA-Public Use
  Company Number: JP-GENENTECH-282133

PATIENT
  Sex: Female

DRUGS (10)
  1. DECADRON [Concomitant]
     Indication: PROPHYLAXIS
     Dosage: 4 MG, QD
     Route: 065
     Dates: start: 20090212
  2. ALKERAN [Concomitant]
     Indication: PROPHYLAXIS AGAINST TRANSPLANT REJECTION
     Dosage: 60 MG, QD
     Route: 065
     Dates: start: 20090214
  3. CARBENIN [Concomitant]
     Indication: C-REACTIVE PROTEIN INCREASED
  4. TOBRACIN [Concomitant]
     Indication: C-REACTIVE PROTEIN INCREASED
  5. RITUXAN [Suspect]
     Indication: EPSTEIN-BARR VIRUS ASSOCIATED LYMPHOPROLIFERATIVE DISORDER
     Dosage: 330 MG, SINGLE
     Route: 042
     Dates: start: 20090328
  6. ATARAX [Concomitant]
     Indication: PROPHYLAXIS
     Dosage: 12.5 MG, QD
     Route: 065
     Dates: start: 20090214
  7. TOBRACIN [Concomitant]
     Indication: PYREXIA
     Dosage: 80 UNK, QD
     Dates: start: 20090213
  8. ZOVIRAX [Concomitant]
     Indication: PROPHYLAXIS
     Dosage: 360 UNK, QD
     Route: 042
     Dates: start: 20090213
  9. THYMOGLOBULIN [Concomitant]
     Indication: PROPHYLAXIS AGAINST TRANSPLANT REJECTION
  10. CARBENIN [Concomitant]
     Indication: PYREXIA
     Dosage: 2000 UNK, QD
     Route: 065
     Dates: start: 20090513

REACTIONS (1)
  - MULTI-ORGAN FAILURE [None]
